FAERS Safety Report 24385155 (Version 5)
Quarter: 2025Q1

REPORT INFORMATION
  Report Type: Report from Study
  Country: US (occurrence: US)
  Receive Date: 20241001
  Receipt Date: 20250102
  Transmission Date: 20250409
  Serious: Yes (Hospitalization)
  Sender: SUNOVION
  Company Number: US-SUMITOMO PHARMA SWITZERLAND GMBH-2024SPA002667

PATIENT

DRUGS (3)
  1. ORGOVYX [Suspect]
     Active Substance: RELUGOLIX
     Indication: Prostate cancer
     Dosage: 360 MG, SINGLE
     Route: 048
     Dates: start: 20240815, end: 20240815
  2. ORGOVYX [Suspect]
     Active Substance: RELUGOLIX
     Dosage: 120 MG, QD
     Route: 048
     Dates: start: 20240816
  3. DAROLUTAMIDE [Suspect]
     Active Substance: DAROLUTAMIDE
     Dosage: 300 MG, BID
     Route: 065

REACTIONS (13)
  - Cardiac disorder [Unknown]
  - Hepatic enzyme abnormal [Unknown]
  - Hepatic steatosis [Unknown]
  - Balance disorder [Not Recovered/Not Resolved]
  - Adverse drug reaction [Unknown]
  - Confusional state [Unknown]
  - Blood glucose increased [Unknown]
  - Flushing [Unknown]
  - Hyperhidrosis [Unknown]
  - Dizziness [Unknown]
  - Hot flush [Unknown]
  - Fatigue [Unknown]
  - Extra dose administered [Unknown]
